FAERS Safety Report 21004618 (Version 1)
Quarter: 2022Q2

REPORT INFORMATION
  Report Type: Spontaneous
  Country: CN (occurrence: None)
  Receive Date: 20220624
  Receipt Date: 20220624
  Transmission Date: 20220721
  Serious: Yes (Death)
  Sender: FDA-Public Use
  Company Number: CN-Eisai Medical Research-EC-2022-117567

PATIENT
  Age: 22 Year
  Sex: Male

DRUGS (3)
  1. RABEPRAZOLE [Suspect]
     Active Substance: RABEPRAZOLE
     Indication: Gastritis
     Route: 048
  2. ETIMICIN SULFATE [Suspect]
     Active Substance: ETIMICIN SULFATE
     Indication: Gastritis
     Route: 041
  3. METOCLOPRAMIDE [Suspect]
     Active Substance: METOCLOPRAMIDE
     Indication: Gastritis
     Route: 041

REACTIONS (2)
  - Eosinophilic myocarditis [Fatal]
  - Drug hypersensitivity [Fatal]
